FAERS Safety Report 9259141 (Version 1)
Quarter: 2013Q2

REPORT INFORMATION
  Report Type: Spontaneous
  Country: US (occurrence: US)
  Receive Date: 20130426
  Receipt Date: 20130426
  Transmission Date: 20140414
  Serious: No
  Sender: FDA-Public Use
  Company Number: US-FOUGERA-2012FO001094

PATIENT
  Age: 85 Year
  Sex: Female
  Weight: 78.93 kg

DRUGS (7)
  1. TRIAMCINOLONE ACETONIDE [Suspect]
     Indication: ERYTHEMA
     Route: 061
     Dates: start: 20120505, end: 20120505
  2. TRIAMCINOLONE ACETONIDE [Suspect]
     Indication: SKIN EXFOLIATION
     Route: 061
     Dates: start: 20120505, end: 20120505
  3. FUROSEMIDE [Concomitant]
     Indication: FLUID RETENTION
     Route: 048
  4. GLYBURIDE [Concomitant]
     Indication: DIABETES MELLITUS
     Route: 048
  5. BABY ASPIRIN [Concomitant]
     Indication: CARDIAC DISORDER
     Route: 048
  6. LISINOPRIL [Concomitant]
     Indication: CARDIAC DISORDER
     Route: 048
  7. PRILOSEC /00661201/ [Concomitant]
     Indication: DYSPEPSIA
     Route: 048

REACTIONS (2)
  - Muscle spasms [Recovered/Resolved]
  - Pain [Recovered/Resolved]
